FAERS Safety Report 6977891-3 (Version None)
Quarter: 2010Q3

REPORT INFORMATION
  Report Type: 
  Country: None (occurrence: None)
  Receive Date: 20100913
  Receipt Date: 20100907
  Transmission Date: 20110219
  Serious: Yes (Other)
  Sender: FDA-Public Use
  Company Number: US-SHIRE-SPV1-2010-01539

PATIENT
  Age: 18 Year
  Sex: Female

DRUGS (2)
  1. MAS (MIXED AMPHETAMINE SALTS) [Suspect]
     Indication: ATTENTION DEFICIT/HYPERACTIVITY DISORDER
     Route: 048
     Dates: start: 20100820
  2. MAS (MIXED AMPHETAMINE SALTS) [Suspect]
     Dates: start: 20100820

REACTIONS (1)
  - SUICIDAL IDEATION [None]
